FAERS Safety Report 25249803 (Version 1)
Quarter: 2025Q2

REPORT INFORMATION
  Report Type: Spontaneous
  Country: US (occurrence: US)
  Receive Date: 20250429
  Receipt Date: 20250429
  Transmission Date: 20250717
  Serious: Yes (Other)
  Sender: BAYER HEALTHCARE LLC
  Company Number: US-BAYER-2025A056395

PATIENT
  Age: 69 Year
  Sex: Male

DRUGS (4)
  1. ASPIRIN [Suspect]
     Active Substance: ASPIRIN
     Indication: Antiplatelet therapy
  2. MONOETHANOLAMINE [Concomitant]
     Active Substance: MONOETHANOLAMINE
     Indication: Phlebectasia
  3. EPINEPHRINE [Concomitant]
     Active Substance: EPINEPHRINE
  4. OCTREOTIDE [Concomitant]
     Active Substance: OCTREOTIDE
     Indication: Phlebectasia

REACTIONS (2)
  - Melaena [Recovered/Resolved]
  - Anaemia [None]
